FAERS Safety Report 7368987-5 (Version None)
Quarter: 2011Q1

REPORT INFORMATION
  Report Type: 
  Country: None (occurrence: None)
  Receive Date: 20110314
  Receipt Date: 20110225
  Transmission Date: 20110831
  Serious: Yes (Life-Threatening, Hospitalization)
  Sender: FDA-Public Use
  Company Number: AUR-APL-2011-00770

PATIENT
  Age: 65 Year
  Sex: Female

DRUGS (9)
  1. SIMVASTATNI [Concomitant]
  2. FUROSEMIDE [Concomitant]
  3. RENITEC COMP. [Suspect]
     Indication: HYPERTENSION
     Dosage: 1DF-QD-ORAL
     Route: 048
  4. PROBECID [Concomitant]
  5. METFORMIN HCL [Suspect]
     Indication: TYPE 2 DIABETES MELLITUS
     Dosage: 1G-TID
  6. SOMAC [Concomitant]
  7. LASIX [Concomitant]
  8. METOPROLOL [Concomitant]
  9. AMARYL [Concomitant]

REACTIONS (3)
  - RENAL FAILURE [None]
  - LACTIC ACIDOSIS [None]
  - DRUG INTERACTION [None]
